FAERS Safety Report 6873782-7 (Version None)
Quarter: 2010Q3

REPORT INFORMATION
  Report Type: 
  Country: None (occurrence: None)
  Receive Date: 20100723
  Receipt Date: 20090622
  Transmission Date: 20110219
  Serious: No
  Sender: FDA-Public Use
  Company Number: US-PFIZER INC-2009175798

PATIENT
  Sex: Female
  Weight: 58.059 kg

DRUGS (4)
  1. CHANTIX [Suspect]
     Indication: CHRONIC OBSTRUCTIVE PULMONARY DISEASE
     Dosage: 1 MG, 2X/DAY
     Dates: start: 20090202, end: 20090427
  2. CHANTIX [Suspect]
     Indication: SMOKING CESSATION THERAPY
     Route: 048
     Dates: start: 20090202, end: 20090427
  3. SPIRIVA [Concomitant]
     Dosage: UNK
  4. ADVAIR DISKUS 100/50 [Concomitant]
     Dosage: UNK

REACTIONS (2)
  - NAUSEA [None]
  - STRESS [None]
